FAERS Safety Report 25884329 (Version 1)
Quarter: 2025Q4

REPORT INFORMATION
  Report Type: Spontaneous
  Country: US (occurrence: US)
  Receive Date: 20251006
  Receipt Date: 20251006
  Transmission Date: 20260118
  Serious: Yes (Hospitalization)
  Sender: APOTEX
  Company Number: US-APOTEX-2025AP030803

PATIENT
  Age: 16 Year
  Sex: Female

DRUGS (5)
  1. RISPERIDONE [Suspect]
     Active Substance: RISPERIDONE
     Indication: Psychotic symptom
     Dosage: 2 MILLIGRAM, BID
     Route: 065
  2. RISPERIDONE [Suspect]
     Active Substance: RISPERIDONE
     Dosage: 0.5 MILLIGRAM, BID
     Route: 065
  3. RISPERIDONE [Suspect]
     Active Substance: RISPERIDONE
     Dosage: 1 MILLIGRAM, Q.AM
     Route: 065
  4. RISPERIDONE [Suspect]
     Active Substance: RISPERIDONE
     Dosage: 0.5 MILLIGRAM, Q.H.S.
     Route: 065
  5. CLONIDINE [Concomitant]
     Active Substance: CLONIDINE
     Indication: Product used for unknown indication
     Dosage: 0.1 MILLIGRAM, TID
     Route: 065

REACTIONS (1)
  - Catatonia [Unknown]
